FAERS Safety Report 19190967 (Version 2)
Quarter: 2021Q2

REPORT INFORMATION
  Report Type: Spontaneous
  Country: CN (occurrence: CN)
  Receive Date: 20210428
  Receipt Date: 20210430
  Transmission Date: 20210717
  Serious: Yes (Other)
  Sender: FDA-Public Use
  Company Number: CN-BAYER-2021-132327

PATIENT
  Age: 55 Year
  Sex: Male

DRUGS (4)
  1. STIVARGA [Suspect]
     Active Substance: REGORAFENIB
     Dosage: 160 MG, QD
     Route: 048
     Dates: start: 202009
  2. NEXAVAR [Suspect]
     Active Substance: SORAFENIB
     Indication: HEPATOCELLULAR CARCINOMA
  3. NEXAVAR [Suspect]
     Active Substance: SORAFENIB
     Indication: TUMOUR EMBOLISM
     Dosage: 400 MG, BID
     Route: 048
     Dates: start: 201708, end: 201912
  4. STIVARGA [Suspect]
     Active Substance: REGORAFENIB
     Dosage: 120 MG, QD
     Route: 048

REACTIONS (2)
  - Hepatocellular carcinoma [None]
  - Palmar-plantar erythrodysaesthesia syndrome [Recovered/Resolved]
